FAERS Safety Report 9137055 (Version 2)
Quarter: 2013Q2

REPORT INFORMATION
  Report Type: Spontaneous
  Country: US (occurrence: US)
  Receive Date: 20130304
  Receipt Date: 20130411
  Transmission Date: 20140414
  Serious: No
  Sender: FDA-Public Use
  Company Number: US-B.I. PHARMACEUTICALS,INC./RIDGEFIELD-2013-BI-05144BP

PATIENT
  Age: 58 Year
  Sex: Male
  Weight: 82 kg

DRUGS (6)
  1. PRADAXA [Suspect]
     Indication: CARDIOVASCULAR DISORDER
     Dosage: 300 MG
     Route: 048
     Dates: start: 201205
  2. ASPIRIN [Concomitant]
     Dosage: 325 MG
     Route: 048
  3. METOPROLOL [Concomitant]
     Dosage: 200 MG
     Route: 048
  4. POTASSIUM [Concomitant]
     Dosage: 10 MEQ
     Route: 048
  5. AMLODIPINE [Concomitant]
     Dosage: 10 MG
     Route: 048
  6. CLONIDINE [Concomitant]
     Indication: HYPERTENSION
     Dosage: 0.4 MG
     Route: 048

REACTIONS (2)
  - Fall [Recovered/Resolved]
  - Oedema peripheral [Not Recovered/Not Resolved]
